FAERS Safety Report 8334971-8 (Version None)
Quarter: 2012Q2

REPORT INFORMATION
  Report Type: 
  Country: None (occurrence: None)
  Receive Date: 20120503
  Receipt Date: 20120425
  Transmission Date: 20120825
  Serious: Yes (Hospitalization)
  Sender: FDA-Public Use
  Company Number: US-JNJFOC-20110410268

PATIENT
  Sex: Male
  Weight: 66.8 kg

DRUGS (10)
  1. HUMIRA [Concomitant]
  2. ANTIBIOTICS [Concomitant]
     Indication: INFLAMMATORY BOWEL DISEASE
  3. MULTI-VITAMINS [Concomitant]
  4. PROBIOTICS [Concomitant]
  5. REMICADE [Suspect]
     Route: 042
     Dates: start: 20100920, end: 20100920
  6. HUMIRA [Concomitant]
     Dates: start: 20110420
  7. REMICADE [Suspect]
     Indication: CROHN'S DISEASE
     Route: 042
     Dates: start: 20100621
  8. REMICADE [Suspect]
     Route: 042
     Dates: end: 20110119
  9. OXYCODONE AND ACETAMINOPHEN [Concomitant]
  10. CALTRATE D [Concomitant]

REACTIONS (2)
  - ANAL FISTULA [None]
  - CROHN'S DISEASE [None]
